FAERS Safety Report 9320087 (Version 1)
Quarter: 2013Q2

REPORT INFORMATION
  Report Type: Spontaneous
  Country: GR (occurrence: GR)
  Receive Date: 20130530
  Receipt Date: 20130530
  Transmission Date: 20140414
  Serious: Yes (Other)
  Sender: FDA-Public Use
  Company Number: GR-PFIZER INC-2013160466

PATIENT
  Age: 42 Year
  Sex: Male

DRUGS (5)
  1. CABERGOLINE [Suspect]
     Indication: PROLACTINOMA
     Dosage: UNK
  2. CABERGOLINE [Suspect]
     Dosage: 3.5 MG, WEEKLY
  3. HYDROCORTISONE [Concomitant]
     Indication: SUPPLEMENTATION THERAPY
     Dosage: UNK
  4. THYROXIN [Concomitant]
     Indication: SUPPLEMENTATION THERAPY
     Dosage: UNK
  5. TESTOSTERONE [Concomitant]
     Indication: SUPPLEMENTATION THERAPY
     Dosage: UNK

REACTIONS (2)
  - Hemianopia [Recovered/Resolved]
  - Visual pathway disorder [Recovered/Resolved]
